FAERS Safety Report 7894260-2 (Version None)
Quarter: 2011Q4

REPORT INFORMATION
  Report Type: 
  Country: None (occurrence: None)
  Receive Date: 20111104
  Receipt Date: 20111025
  Transmission Date: 20120403
  Serious: Yes (Hospitalization)
  Sender: FDA-Public Use
  Company Number: NL-ROCHE-1007078

PATIENT
  Sex: Male

DRUGS (5)
  1. AVASTIN [Suspect]
     Indication: COLORECTAL CANCER
     Route: 042
     Dates: start: 20090423
  2. LOPERAMIDE HCL [Concomitant]
  3. XELODA [Suspect]
     Indication: COLORECTAL CANCER
     Route: 048
     Dates: start: 20090423
  4. OXALIPLATIN [Suspect]
     Indication: COLORECTAL CANCER
     Route: 042
     Dates: start: 20090423
  5. FUROSEMIDE [Concomitant]

REACTIONS (4)
  - SOMNOLENCE [None]
  - CONFUSIONAL STATE [None]
  - DELIRIUM [None]
  - URINARY TRACT INFECTION [None]
